FAERS Safety Report 15104207 (Version 5)
Quarter: 2019Q3

REPORT INFORMATION
  Report Type: Spontaneous
  Country: CA (occurrence: CA)
  Receive Date: 20180703
  Receipt Date: 20190703
  Transmission Date: 20191004
  Serious: Yes (Other)
  Sender: FDA-Public Use
  Company Number: CA-PFIZER INC-2018097271

PATIENT
  Age: 72 Year
  Sex: Female

DRUGS (2)
  1. XELJANZ [Suspect]
     Active Substance: TOFACITINIB CITRATE
     Indication: RHEUMATOID ARTHRITIS
     Dosage: 5 MG, 2X/DAY
     Route: 048
     Dates: start: 20180301, end: 2018
  2. XELJANZ [Suspect]
     Active Substance: TOFACITINIB CITRATE
     Dosage: 5 MG, 1X/DAY
     Route: 048
     Dates: start: 2018, end: 201805

REACTIONS (11)
  - Humerus fracture [Recovering/Resolving]
  - Drug ineffective [Unknown]
  - Gastrointestinal viral infection [Recovered/Resolved]
  - Sternal fracture [Recovering/Resolving]
  - Scapula fracture [Recovering/Resolving]
  - Fatigue [Unknown]
  - Renal disorder [Unknown]
  - Blood pressure decreased [Unknown]
  - Pain [Unknown]
  - Fall [Recovering/Resolving]
  - Feeling abnormal [Unknown]

NARRATIVE: CASE EVENT DATE: 2018
